FAERS Safety Report 15468164 (Version 7)
Quarter: 2022Q2

REPORT INFORMATION
  Report Type: Report from Study
  Country: JP (occurrence: JP)
  Receive Date: 20181005
  Receipt Date: 20220621
  Transmission Date: 20220721
  Serious: Yes (Hospitalization, Other)
  Sender: FDA-Public Use
  Company Number: JP-VIIV HEALTHCARE ULC-JP2017JPN102704

PATIENT

DRUGS (19)
  1. DOLUTEGRAVIR [Suspect]
     Active Substance: DOLUTEGRAVIR
     Indication: HIV infection
     Dosage: 50 MG, 1D
     Route: 048
     Dates: start: 20150713
  2. TRUVADA [Concomitant]
     Active Substance: EMTRICITABINE\TENOFOVIR DISOPROXIL FUMARATE
     Indication: HIV infection
     Dosage: 1 DF, 1D
     Dates: start: 20150713, end: 20170423
  3. DESCOVY [Concomitant]
     Active Substance: EMTRICITABINE\TENOFOVIR ALAFENAMIDE FUMARATE
     Indication: HIV infection
     Dosage: 1 DF, 1D
     Dates: start: 20170424
  4. VENETLIN INHALATION [Concomitant]
     Indication: Antifungal prophylaxis
     Dosage: 0.3 ML, UNK
  5. PENTAMIDINE [Concomitant]
     Active Substance: PENTAMIDINE
     Indication: Antifungal prophylaxis
     Dosage: 0.33 V, UNK
  6. ISOSORBIDE DINITRATE [Concomitant]
     Active Substance: ISOSORBIDE DINITRATE
     Indication: Hypertension
     Dosage: UNK
  7. ENALAPRIL [Concomitant]
     Active Substance: ENALAPRIL
     Indication: Hypertension
     Dosage: UNK
  8. ADALAT [Concomitant]
     Active Substance: NIFEDIPINE
     Indication: Hypertension
     Dosage: UNK
  9. NIFEDIPINE [Concomitant]
     Active Substance: NIFEDIPINE
     Dosage: UNK
     Dates: start: 20180122
  10. FUROSEMIDE [Concomitant]
     Active Substance: FUROSEMIDE
     Dosage: UNK
     Dates: start: 20180208, end: 20180404
  11. CANDESARTAN CILEXETIL TABLET [Concomitant]
     Dosage: UNK
     Dates: start: 20180208
  12. GENTAMICIN SULFATE OINTMENT [Concomitant]
     Indication: Prophylaxis
     Dosage: UNK
     Dates: start: 20180122, end: 20180207
  13. LANSOPRAZOLE-OD TABLETS [Concomitant]
     Indication: Prophylaxis
     Dosage: UNK
     Dates: start: 20171106
  14. BISOPROLOL FUMARATE TABLET [Concomitant]
     Dosage: UNK
     Dates: start: 20190218
  15. AIMMUGEN [Concomitant]
     Indication: Prophylaxis
     Dosage: UNK
     Dates: start: 20180806, end: 20180806
  16. TRAZENTA TABLETS [Concomitant]
     Dosage: UNK
     Dates: start: 20201109
  17. ACETAMINOPHEN [Concomitant]
     Active Substance: ACETAMINOPHEN
     Dosage: UNK
     Dates: start: 20210712, end: 20210715
  18. CALCIUM CHLORIDE\POTASSIUM CHLORIDE\SODIUM ACETATE\SODIUM CHLORIDE [Concomitant]
     Active Substance: CALCIUM CHLORIDE\POTASSIUM CHLORIDE\SODIUM ACETATE\SODIUM CHLORIDE
     Indication: Fluid replacement
     Dosage: UNK
     Dates: start: 20211112, end: 20211112
  19. CEFMETAZOLE NA FOR IV INJECTION [Concomitant]
     Indication: Prophylaxis
     Dosage: UNK
     Dates: start: 20211112, end: 20211112

REACTIONS (5)
  - Angina pectoris [Recovering/Resolving]
  - Tooth abscess [Recovered/Resolved]
  - Dyslipidaemia [Recovering/Resolving]
  - Prostate cancer [Unknown]
  - COVID-19 [Recovered/Resolved]

NARRATIVE: CASE EVENT DATE: 20160411
